FAERS Safety Report 4536407-1 (Version None)
Quarter: 2004Q4

REPORT INFORMATION
  Report Type: 
  Country: None (occurrence: None)
  Receive Date: 20041223
  Receipt Date: 20040924
  Transmission Date: 20050328
  Serious: No
  Sender: FDA-Public Use
  Company Number: US-GLAXOSMITHKLINE-A0527283A

PATIENT
  Sex: Female

DRUGS (2)
  1. FLONASE [Suspect]
     Indication: SINUS DISORDER
  2. NO CONCURRENT MEDICATION [Concomitant]

REACTIONS (1)
  - SINUSITIS [None]
